FAERS Safety Report 17375777 (Version 1)
Quarter: 2020Q1

REPORT INFORMATION
  Report Type: Spontaneous
  Country: ES (occurrence: ES)
  Receive Date: 20200206
  Receipt Date: 20200206
  Transmission Date: 20200409
  Serious: Yes (Hospitalization)
  Sender: FDA-Public Use
  Company Number: ES-ACCORD-171944

PATIENT
  Age: 9 Year
  Sex: Female
  Weight: 46.6 kg

DRUGS (1)
  1. METHOTREXATE. [Suspect]
     Active Substance: METHOTREXATE
     Indication: OSTEOSARCOMA
     Route: 042
     Dates: start: 20191125, end: 20191125

REACTIONS (14)
  - Hepatic function abnormal [Recovered/Resolved]
  - Coagulopathy [Recovered/Resolved]
  - Neutropenic colitis [Recovered/Resolved]
  - Gastrointestinal inflammation [Recovered/Resolved]
  - Thrombocytopenia [Recovered/Resolved]
  - Haematochezia [Recovered/Resolved]
  - Rash macular [Recovered/Resolved]
  - Epistaxis [Recovered/Resolved]
  - Anaemia [Recovered/Resolved]
  - Exfoliative rash [Recovered/Resolved]
  - Pyrexia [Recovered/Resolved]
  - Blister [Recovered/Resolved]
  - Rash pruritic [Recovered/Resolved]
  - Stomatitis [Recovered/Resolved]

NARRATIVE: CASE EVENT DATE: 20191204
